FAERS Safety Report 17445768 (Version 1)
Quarter: 2020Q1

REPORT INFORMATION
  Report Type: Spontaneous
  Country: DE (occurrence: DE)
  Receive Date: 20200221
  Receipt Date: 20200221
  Transmission Date: 20200409
  Serious: Yes (Other)
  Sender: FDA-Public Use
  Company Number: DE-US-PROVELL PHARMACEUTICALS LLC-E2B_90074932

PATIENT
  Sex: Female

DRUGS (1)
  1. EUTHYROX 100 NF [Suspect]
     Active Substance: LEVOTHYROXINE SODIUM
     Indication: POST PROCEDURAL HYPOTHYROIDISM
     Dates: start: 20191004, end: 20200104

REACTIONS (7)
  - Neck pain [Recovering/Resolving]
  - Insomnia [Not Recovered/Not Resolved]
  - Suicidal ideation [Recovering/Resolving]
  - Restlessness [Recovering/Resolving]
  - Dizziness [Recovering/Resolving]
  - Headache [Recovering/Resolving]
  - Palpitations [Recovering/Resolving]

NARRATIVE: CASE EVENT DATE: 201910
